FAERS Safety Report 17772848 (Version 1)
Quarter: 2020Q2

REPORT INFORMATION
  Report Type: Report from Study
  Country: EG (occurrence: EG)
  Receive Date: 20200512
  Receipt Date: 20200512
  Transmission Date: 20200714
  Serious: Yes (Hospitalization, Other)
  Sender: FDA-Public Use
  Company Number: NVSC2019EG005508

PATIENT
  Sex: Female

DRUGS (3)
  1. TASIGNA [Suspect]
     Active Substance: NILOTINIB
     Indication: CHRONIC MYELOID LEUKAEMIA
     Dosage: 800 MG, QD (STARTED 7 YEARS AGO AND STOPPED 6 MONTHS AGO)
     Route: 048
  2. TASIGNA [Suspect]
     Active Substance: NILOTINIB
     Dosage: 800 MG, QD
     Route: 048
     Dates: start: 2018
  3. GLIVEC [Suspect]
     Active Substance: IMATINIB MESYLATE
     Indication: CHRONIC MYELOID LEUKAEMIA
     Dosage: 400 MG, QD STARTED 6 MONTHS AGO, AND STOPPED ONE MONTH AGO)
     Route: 048
     Dates: start: 2014

REACTIONS (6)
  - Splenomegaly [Recovering/Resolving]
  - Anaemia [Recovering/Resolving]
  - Drug ineffective [Not Recovered/Not Resolved]
  - Drug resistance [Unknown]
  - White blood cell count increased [Not Recovered/Not Resolved]
  - Cytogenetic analysis abnormal [Not Recovered/Not Resolved]

NARRATIVE: CASE EVENT DATE: 2014
